FAERS Safety Report 13975578 (Version 1)
Quarter: 2017Q3

REPORT INFORMATION
  Report Type: Spontaneous
  Country: US (occurrence: US)
  Receive Date: 20170915
  Receipt Date: 20170915
  Transmission Date: 20171128
  Serious: Yes (Other)
  Sender: FDA-Public Use
  Company Number: US-NAPPMUNDI-USA-2017-0140755

PATIENT
  Sex: Male

DRUGS (4)
  1. MORPHINE SULFATE EXTENDED-RELEASE TABLETS (RHODES 74-769, 74-862) [Suspect]
     Active Substance: MORPHINE SULFATE
     Indication: PAIN
     Dosage: UNK
     Route: 048
  2. VALIUM [Concomitant]
     Active Substance: DIAZEPAM
     Indication: MUSCLE RELAXANT THERAPY
     Dosage: UNK
     Route: 065
  3. OXYCODONE HYDROCHLORIDE (SIMILAR TO NDA 22-272) [Suspect]
     Active Substance: OXYCODONE HYDROCHLORIDE
     Indication: PAIN
     Dosage: UNK
     Route: 048
  4. SENOKOT [Concomitant]
     Active Substance: SENNOSIDES
     Indication: FAECES HARD
     Dosage: UNK
     Route: 048

REACTIONS (4)
  - Chondropathy [Unknown]
  - Insomnia [Unknown]
  - Bone disorder [Unknown]
  - Loss of personal independence in daily activities [Unknown]
